FAERS Safety Report 7421284-1 (Version None)
Quarter: 2011Q2

REPORT INFORMATION
  Report Type: 
  Country: None (occurrence: None)
  Receive Date: 20110418
  Receipt Date: 20110406
  Transmission Date: 20111010
  Serious: Yes (Hospitalization, Disabling)
  Sender: FDA-Public Use
  Company Number: US-MERCK-1104USA00685

PATIENT
  Age: 57 Year
  Sex: Female

DRUGS (1)
  1. SINGULAIR [Suspect]
     Route: 048

REACTIONS (14)
  - ANXIETY [None]
  - DEPRESSION [None]
  - DIARRHOEA [None]
  - AGITATION [None]
  - SUICIDAL IDEATION [None]
  - HIATUS HERNIA [None]
  - IRRITABILITY [None]
  - HYPOAESTHESIA [None]
  - GASTROOESOPHAGEAL REFLUX DISEASE [None]
  - CONFUSIONAL STATE [None]
  - RESTLESSNESS [None]
  - POOR QUALITY SLEEP [None]
  - ABNORMAL DREAMS [None]
  - TREMOR [None]
